FAERS Safety Report 8999916 (Version 1)
Quarter: 2013Q1

REPORT INFORMATION
  Report Type: Report from Study
  Country: US (occurrence: US)
  Receive Date: 20130102
  Receipt Date: 20130102
  Transmission Date: 20140127
  Serious: Yes (Hospitalization)
  Sender: FDA-Public Use
  Company Number: US-SANOFI-AVENTIS-2012SA093708

PATIENT
  Age: 62 Year
  Sex: Female
  Weight: 125 kg

DRUGS (4)
  1. DOCETAXEL [Suspect]
     Indication: NEOPLASM MALIGNANT
     Route: 041
     Dates: start: 20111031, end: 20111031
  2. DOCETAXEL [Suspect]
     Indication: NEOPLASM MALIGNANT
     Route: 041
  3. INVESTIGATIONAL DRUG [Suspect]
     Indication: NEOPLASM MALIGNANT
     Route: 041
     Dates: start: 20111028, end: 20111028
  4. INVESTIGATIONAL DRUG [Suspect]
     Indication: NEOPLASM MALIGNANT
     Route: 041
     Dates: start: 20121128, end: 20121128

REACTIONS (1)
  - Acute haemolytic transfusion reaction [Recovered/Resolved with Sequelae]
